FAERS Safety Report 17353337 (Version 1)
Quarter: 2020Q1

REPORT INFORMATION
  Report Type: Spontaneous
  Country: CA (occurrence: CA)
  Receive Date: 20200131
  Receipt Date: 20200131
  Transmission Date: 20200409
  Serious: Yes (Other)
  Sender: FDA-Public Use
  Company Number: CA-HORIZON-RAV-0003-2020

PATIENT
  Age: 6 Month
  Sex: Female

DRUGS (4)
  1. L-CITRULLINE [Concomitant]
     Active Substance: CITRULLINE
  2. RAVICTI [Suspect]
     Active Substance: GLYCEROL PHENYLBUTYRATE
     Indication: CARBAMOYL PHOSPHATE SYNTHETASE DEFICIENCY
     Dosage: 1.4ML TID
     Dates: start: 20191108
  3. L-ARGININE [Concomitant]
     Active Substance: ARGININE
  4. CARGLUMIC ACID [Concomitant]
     Active Substance: CARGLUMIC ACID

REACTIONS (1)
  - Liver transplant [Recovering/Resolving]

NARRATIVE: CASE EVENT DATE: 20200113
